FAERS Safety Report 5592928-4 (Version None)
Quarter: 2008Q1

REPORT INFORMATION
  Report Type: 
  Country: None (occurrence: None)
  Receive Date: 20080116
  Receipt Date: 20080106
  Transmission Date: 20080703
  Serious: Yes (Hospitalization)
  Sender: FDA-Public Use
  Company Number: US-AMGEN-KDL240566

PATIENT
  Sex: Female

DRUGS (1)
  1. ENBREL [Suspect]
     Indication: PSORIASIS
     Route: 058
     Dates: start: 20051102

REACTIONS (10)
  - ARTHRALGIA [None]
  - BREAST CYST [None]
  - HOT FLUSH [None]
  - JOINT SWELLING [None]
  - NIGHT SWEATS [None]
  - OEDEMA PERIPHERAL [None]
  - PAIN IN EXTREMITY [None]
  - SYNCOPE [None]
  - URINARY TRACT INFECTION [None]
  - VAGINAL INFECTION [None]
